FAERS Safety Report 5689862-8 (Version None)
Quarter: 2008Q1

REPORT INFORMATION
  Report Type: 
  Country: None (occurrence: None)
  Receive Date: 20080331
  Receipt Date: 20080331
  Transmission Date: 20080703
  Serious: Yes (Hospitalization)
  Sender: FDA-Public Use
  Company Number: None

PATIENT
  Age: 54 Year
  Sex: Female
  Weight: 58.6002 kg

DRUGS (10)
  1. ZORBTIVE [Suspect]
     Indication: GASTROINTESTINAL DISORDER
     Dosage: 6.0MG QD SUBCUTANEOUS
     Route: 058
     Dates: start: 20070503, end: 20070530
  2. TPN [Concomitant]
  3. COREG [Concomitant]
  4. ZOCOR [Concomitant]
  5. POTASSIUM CHLORIDE [Concomitant]
  6. CODEINE SUL TAB [Concomitant]
  7. PREVACID [Concomitant]
  8. ASPIRIN [Concomitant]
  9. IRON [Concomitant]
  10. FLAGYL [Concomitant]

REACTIONS (3)
  - BACTERAEMIA [None]
  - DIARRHOEA [None]
  - NEPHROLITHIASIS [None]
